FAERS Safety Report 17611397 (Version 1)
Quarter: 2020Q2

REPORT INFORMATION
  Report Type: Spontaneous
  Country: US (occurrence: US)
  Receive Date: 20200401
  Receipt Date: 20200401
  Transmission Date: 20200713
  Serious: Yes (Death)
  Sender: FDA-Public Use
  Company Number: None

PATIENT
  Age: 89 Year
  Sex: Female
  Weight: 48.6 kg

DRUGS (14)
  1. BROVANA 15 MCG/2ML, INHALER [Concomitant]
     Dates: end: 20200401
  2. MAGNESIUM OXIDE 500 MG, ORAL [Concomitant]
     Dates: end: 20200401
  3. FLONASE 50 MCG/ACTUATION, NASAL [Concomitant]
     Dates: end: 20200401
  4. TORSEMIDE 10 MG, ORAL [Concomitant]
     Dates: end: 20200401
  5. SPIRIVIA HANDHALER 18 MCG, ORAL [Concomitant]
     Dates: end: 20200401
  6. ETOPOSIDE. [Suspect]
     Active Substance: ETOPOSIDE
     Indication: BREAST CANCER
     Route: 048
     Dates: start: 20200311, end: 20200401
  7. CALCITRIOL 0.25 MG, ORAL [Concomitant]
     Dates: end: 20200401
  8. XALATAN 0.005% OPHTHAMIC [Concomitant]
     Dates: end: 20200401
  9. ZOLOFT, 50 MG, ORAL [Concomitant]
     Dates: end: 20200401
  10. ETOPOSIDE. [Suspect]
     Active Substance: ETOPOSIDE
     Indication: MESOTHELIOMA
     Route: 048
     Dates: start: 20200311, end: 20200401
  11. BUDESONIDE 0.25 MG/2ML, INHALER [Concomitant]
     Dates: end: 20200401
  12. FOLIC ACID 1MG ,ORAL [Concomitant]
     Dates: end: 20200401
  13. HYDROXYZINE 50 MG, ORAL [Concomitant]
     Dates: end: 20200401
  14. AMLODIPINE 2.5 MG, ORAL [Concomitant]
     Dates: end: 20200401

REACTIONS (1)
  - Death [None]

NARRATIVE: CASE EVENT DATE: 20200401
